FAERS Safety Report 18118198 (Version 1)
Quarter: 2020Q3

REPORT INFORMATION
  Report Type: Spontaneous
  Country: US (occurrence: US)
  Receive Date: 20200806
  Receipt Date: 20200806
  Transmission Date: 20201103
  Serious: Yes (Hospitalization)
  Sender: FDA-Public Use
  Company Number: US-MYLANLABS-2020M1069261

PATIENT
  Age: 7 Decade
  Sex: Male

DRUGS (7)
  1. MOXIFLOXACIN. [Concomitant]
     Active Substance: MOXIFLOXACIN
     Indication: PRODUCT USED FOR UNKNOWN INDICATION
     Route: 061
  2. PREDNISOLONE ACETATE. [Concomitant]
     Active Substance: PREDNISOLONE ACETATE
     Indication: OCULAR HYPERTENSION
     Dosage: 4 TIMES DAILY IN HIS LEFT EYE
     Route: 061
  3. ACETAZOLAMIDE. [Suspect]
     Active Substance: ACETAZOLAMIDE
     Indication: OCULAR HYPERTENSION
     Dosage: EXTENDED RELEASE
     Route: 048
  4. LOTEPREDNOL [Suspect]
     Active Substance: LOTEPREDNOL
     Indication: STEROID THERAPY
     Dosage: 3 TIMES DAILY,
     Route: 061
  5. PREDNISOLONE ACETATE. [Concomitant]
     Active Substance: PREDNISOLONE ACETATE
     Indication: STEROID THERAPY
  6. LOTEPREDNOL [Suspect]
     Active Substance: LOTEPREDNOL
     Indication: OCULAR HYPERTENSION
     Dosage: THERAPY CONTINUED TWICE A DAY
     Route: 061
  7. PILOCARPINE. [Concomitant]
     Active Substance: PILOCARPINE
     Indication: PROPHYLAXIS
     Route: 061

REACTIONS (1)
  - Drug ineffective [Unknown]
